FAERS Safety Report 4789919-X (Version None)
Quarter: 2005Q4

REPORT INFORMATION
  Report Type: 
  Country: None (occurrence: None)
  Receive Date: 20051006
  Receipt Date: 20050930
  Transmission Date: 20060501
  Serious: Yes (Life-Threatening)
  Sender: FDA-Public Use
  Company Number: FR-MERCK-0509FRA00105

PATIENT
  Age: 16 Year
  Sex: Female

DRUGS (7)
  1. MEFOXIN [Suspect]
     Indication: INFECTION PROPHYLAXIS
     Route: 042
     Dates: start: 20021023, end: 20021023
  2. ATRACURIUM BESYLATE [Suspect]
     Indication: GENERAL ANAESTHESIA
     Route: 042
     Dates: start: 20021023, end: 20021023
  3. PROPOFOL [Suspect]
     Indication: GENERAL ANAESTHESIA
     Route: 042
     Dates: start: 20021023, end: 20021023
  4. REMIFENTANIL HYDROCHLORIDE [Suspect]
     Indication: GENERAL ANAESTHESIA
     Route: 042
     Dates: start: 20021023, end: 20021023
  5. BETAMETHASONE [Concomitant]
     Indication: ASTHMA
     Route: 048
  6. ALBUTEROL [Concomitant]
     Indication: ASTHMA
     Route: 055
  7. MAGNESIUM SULFATE [Suspect]
     Indication: TACHYCARDIA
     Route: 042
     Dates: start: 20021023, end: 20021023

REACTIONS (4)
  - ACUTE PULMONARY OEDEMA [None]
  - HYPOTENSION [None]
  - TACHYCARDIA [None]
  - VENTRICULAR HYPOKINESIA [None]
